FAERS Safety Report 22879126 (Version 3)
Quarter: 2024Q2

REPORT INFORMATION
  Report Type: Spontaneous
  Country: US (occurrence: US)
  Receive Date: 20230829
  Receipt Date: 20240606
  Transmission Date: 20240716
  Serious: No
  Sender: FDA-Public Use
  Company Number: US-PFIZER INC-PV202300094396

PATIENT
  Age: 12 Year
  Sex: Female

DRUGS (2)
  1. OXBRYTA [Suspect]
     Active Substance: VOXELOTOR
     Indication: Sickle cell disease
     Dosage: 500MG/3 TABLETS BY MOUTH ONCE DAILY
     Route: 048
     Dates: start: 202304
  2. OXBRYTA [Suspect]
     Active Substance: VOXELOTOR
     Dosage: 500 MG, DAILY
     Route: 048

REACTIONS (4)
  - Haemoglobin decreased [Unknown]
  - Product dose omission issue [Unknown]
  - Product size issue [Unknown]
  - Off label use [Unknown]
